FAERS Safety Report 22250544 (Version 1)
Quarter: 2023Q2

REPORT INFORMATION
  Report Type: Spontaneous
  Country: US (occurrence: US)
  Receive Date: 20230425
  Receipt Date: 20230425
  Transmission Date: 20230721
  Serious: No
  Sender: FDA-Public Use
  Company Number: US-PFIZER INC-202300165402

PATIENT
  Sex: Male

DRUGS (1)
  1. PROTONIX [Suspect]
     Active Substance: PANTOPRAZOLE SODIUM
     Indication: Helicobacter infection
     Dosage: 40 MG, 2X/DAY

REACTIONS (4)
  - Abdominal pain upper [Unknown]
  - Insomnia [Unknown]
  - Off label use [Unknown]
  - Off label use [Unknown]
